FAERS Safety Report 22970114 (Version 6)
Quarter: 2023Q4

REPORT INFORMATION
  Report Type: Report from Study
  Country: KR (occurrence: KR)
  Receive Date: 20230922
  Receipt Date: 20231120
  Transmission Date: 20240110
  Serious: Yes (Death, Hospitalization)
  Sender: FDA-Public Use
  Company Number: AU-ANTENGENE-20230901988

PATIENT
  Age: 63 Year
  Sex: Female
  Weight: 73.2 kg

DRUGS (8)
  1. SELINEXOR [Suspect]
     Active Substance: SELINEXOR
     Indication: Plasma cell myeloma
     Dosage: 60 MG
     Route: 048
     Dates: start: 20230907, end: 20230907
  2. SELINEXOR [Suspect]
     Active Substance: SELINEXOR
     Dosage: 180 MG
     Route: 048
     Dates: start: 20230908, end: 20230908
  3. SELINEXOR [Suspect]
     Active Substance: SELINEXOR
     Dosage: 180 MG
     Route: 048
     Dates: start: 20231006, end: 20231006
  4. POMALIDOMIDE [Suspect]
     Active Substance: POMALIDOMIDE
     Indication: Plasma cell myeloma
     Dosage: 4 MG
     Route: 048
     Dates: start: 20230907, end: 20230908
  5. POMALIDOMIDE [Suspect]
     Active Substance: POMALIDOMIDE
     Indication: Plasma cell myeloma
     Dosage: 4 MG
     Route: 048
     Dates: start: 20231009, end: 20231009
  6. DEXAMETHASONE [Suspect]
     Active Substance: DEXAMETHASONE
     Indication: Plasma cell myeloma
     Dosage: 40 MG
     Route: 048
     Dates: start: 20230907, end: 20230908
  7. DEXAMETHASONE [Suspect]
     Active Substance: DEXAMETHASONE
     Indication: Plasma cell myeloma
     Dosage: 40 MG
     Route: 048
     Dates: start: 20231006, end: 20231006
  8. CETAMADOL [Concomitant]

REACTIONS (5)
  - Disease progression [Fatal]
  - Leukoencephalopathy [Not Recovered/Not Resolved]
  - Vomiting [Recovered/Resolved]
  - Nausea [Recovered/Resolved]
  - Medication error [Unknown]

NARRATIVE: CASE EVENT DATE: 20230908
